FAERS Safety Report 12231374 (Version 4)
Quarter: 2016Q2

REPORT INFORMATION
  Report Type: Report from Study
  Country: CO (occurrence: CO)
  Receive Date: 20160401
  Receipt Date: 20160621
  Transmission Date: 20160815
  Serious: Yes (Other)
  Sender: FDA-Public Use
  Company Number: PHHY2016CO000963

PATIENT
  Age: 68 Year
  Sex: Male
  Weight: 62 kg

DRUGS (5)
  1. REVOLADE [Suspect]
     Active Substance: ELTROMBOPAG
     Indication: IMMUNE THROMBOCYTOPENIC PURPURA
  2. ENALAPRIL [Concomitant]
     Active Substance: ENALAPRIL
     Indication: HYPERTENSION
     Dosage: 20 MG, BID
     Route: 048
  3. HYDROCHLOROTHIAZIDE. [Concomitant]
     Active Substance: HYDROCHLOROTHIAZIDE
     Indication: PRODUCT USED FOR UNKNOWN INDICATION
     Dosage: 25 MG, UNK (HALF DAILY)
     Route: 065
  4. AMLODIPINE [Concomitant]
     Active Substance: AMLODIPINE BESYLATE
     Indication: BLOOD PRESSURE INCREASED
     Dosage: 5 MG, BID
     Route: 048
  5. REVOLADE [Suspect]
     Active Substance: ELTROMBOPAG
     Indication: BONE MARROW FAILURE
     Dosage: 25 MG, TID
     Route: 048
     Dates: start: 20151030, end: 20160609

REACTIONS (7)
  - Deafness [Unknown]
  - Fatigue [Unknown]
  - Dyspnoea [Unknown]
  - Choking [Unknown]
  - Pyrexia [Unknown]
  - Viral infection [Unknown]
  - Blindness [Unknown]

NARRATIVE: CASE EVENT DATE: 20160103
